FAERS Safety Report 5613951-7 (Version None)
Quarter: 2008Q1

REPORT INFORMATION
  Report Type: 
  Country: None (occurrence: None)
  Receive Date: 20080205
  Receipt Date: 20080124
  Transmission Date: 20080703
  Serious: Yes (Other)
  Sender: FDA-Public Use
  Company Number: US-ROCHE-489030

PATIENT
  Age: 46 Year
  Sex: Male
  Weight: 72.6 kg

DRUGS (5)
  1. FUZEON [Suspect]
     Route: 058
     Dates: start: 20051101
  2. PREZISTA [Concomitant]
     Route: 065
  3. TRUVADA [Concomitant]
  4. ZIAGEN [Concomitant]
  5. NORVIR [Concomitant]

REACTIONS (2)
  - INJECTION SITE REACTION [None]
  - LIPODYSTROPHY ACQUIRED [None]
